FAERS Safety Report 8920556 (Version 2)
Quarter: 2013Q3

REPORT INFORMATION
  Report Type: Report from Study
  Country: BR (occurrence: BR)
  Receive Date: 20121121
  Receipt Date: 20130724
  Transmission Date: 20140515
  Serious: Yes (Hospitalization, Other)
  Sender: FDA-Public Use
  Company Number: BR-ABBOTT-12P-020-1008766-00

PATIENT
  Sex: Male

DRUGS (2)
  1. HUMIRA [Suspect]
     Indication: RHEUMATOID ARTHRITIS
     Route: 058
     Dates: start: 20120830, end: 20120927
  2. UNKNOWN DRUG [Concomitant]
     Indication: ARTHRALGIA

REACTIONS (6)
  - Toe amputation [Unknown]
  - Rheumatic disorder [Unknown]
  - Influenza [Unknown]
  - Arthralgia [Unknown]
  - Finger amputation [Unknown]
  - Hospitalisation [Unknown]
